FAERS Safety Report 5150773-8 (Version None)
Quarter: 2006Q4

REPORT INFORMATION
  Report Type: 
  Country: None (occurrence: None)
  Receive Date: 20061108
  Receipt Date: 20061024
  Transmission Date: 20070319
  Serious: Yes (Other)
  Sender: FDA-Public Use
  Company Number: 2006EU001858

PATIENT
  Age: 63 Year
  Sex: Female
  Weight: 60 kg

DRUGS (1)
  1. PROTOPIC [Suspect]
     Indication: ECZEMA
     Dosage: DF, BID, TOPICAL
     Route: 061
     Dates: start: 20051111, end: 20051220

REACTIONS (2)
  - SKIN LESION [None]
  - SQUAMOUS CELL CARCINOMA [None]
